FAERS Safety Report 6255983-4 (Version None)
Quarter: 2009Q2

REPORT INFORMATION
  Report Type: 
  Country: None (occurrence: None)
  Receive Date: 20090630
  Receipt Date: 20090630
  Transmission Date: 20091009
  Serious: No
  Sender: FDA-Public Use
  Company Number: None

PATIENT
  Age: 27 Year
  Sex: Female
  Weight: 77.1115 kg

DRUGS (1)
  1. MIRENA [Suspect]
     Indication: CONTRACEPTION
     Dates: start: 20081001, end: 20090622

REACTIONS (6)
  - ACNE [None]
  - ALOPECIA [None]
  - DEPRESSION [None]
  - LIBIDO DECREASED [None]
  - VISUAL IMPAIRMENT [None]
  - WEIGHT INCREASED [None]
